FAERS Safety Report 6241623-7 (Version None)
Quarter: 2009Q2

REPORT INFORMATION
  Report Type: 
  Country: None (occurrence: None)
  Receive Date: 20090623
  Receipt Date: 20061209
  Transmission Date: 20091009
  Serious: Yes (Life-Threatening, Hospitalization)
  Sender: FDA-Public Use
  Company Number: CZ-ROCHE-597106

PATIENT
  Sex: Female

DRUGS (23)
  1. DACLIZUMAB [Suspect]
     Route: 042
     Dates: start: 20040402
  2. DACLIZUMAB [Suspect]
     Route: 042
     Dates: start: 20040414
  3. MYCOPHENOLATE MOFETIL [Suspect]
     Route: 048
     Dates: start: 20040402, end: 20040402
  4. MYCOPHENOLATE MOFETIL [Suspect]
     Route: 048
     Dates: start: 20040403
  5. MYCOPHENOLATE MOFETIL [Suspect]
     Route: 048
     Dates: start: 20041203, end: 20051130
  6. MYCOPHENOLATE MOFETIL [Suspect]
     Route: 048
     Dates: start: 20060509
  7. MYCOPHENOLATE MOFETIL [Suspect]
     Route: 048
     Dates: start: 20060517
  8. CYCLOSPORINE [Suspect]
     Route: 048
     Dates: start: 20040402, end: 20040402
  9. CYCLOSPORINE [Suspect]
     Route: 048
     Dates: start: 20040403, end: 20060227
  10. CYCLOSPORINE [Suspect]
     Route: 048
     Dates: start: 20061130
  11. SIROLIMUS [Suspect]
     Route: 048
     Dates: start: 20060227, end: 20060509
  12. METHYLPREDNISOLONE [Suspect]
     Route: 042
     Dates: start: 20040402, end: 20040402
  13. METHYLPREDNISOLONE [Suspect]
     Route: 042
     Dates: start: 20040403
  14. PREDNISONE [Suspect]
     Route: 048
     Dates: start: 20040404, end: 20051107
  15. PREDNISONE [Suspect]
     Route: 048
     Dates: start: 20051130
  16. AMLODIPINE [Concomitant]
     Route: 048
     Dates: start: 20040404
  17. AMPHOTERICIN B [Concomitant]
     Dosage: DRUG: AMPHOTERICIN B SOL
     Route: 048
     Dates: start: 20040403, end: 20040525
  18. FLUVASTATIN [Concomitant]
     Route: 048
     Dates: start: 20040422
  19. FLUVASTATIN [Concomitant]
     Route: 048
     Dates: end: 20050406
  20. METOPROLOL SUCCINATE [Concomitant]
     Route: 048
     Dates: start: 20040403
  21. RAMIPRIL [Concomitant]
     Route: 048
     Dates: start: 20040406
  22. SULFAMETHOXAZOLE AND TRIMETHOPRIM [Concomitant]
     Dosage: DRUG: TRIMETHOPRIM-SULPHAMETHOXAZOLE. ROUTE: PR
     Route: 050
     Dates: start: 20040406, end: 20040729
  23. VALACYCLOVIR [Concomitant]
     Route: 048
     Dates: start: 20040403, end: 20040703

REACTIONS (4)
  - PYELONEPHRITIS [None]
  - RENAL CELL CARCINOMA [None]
  - SEPSIS [None]
  - URINARY TRACT INFECTION [None]
